FAERS Safety Report 4687766-0 (Version None)
Quarter: 2005Q2

REPORT INFORMATION
  Report Type: 
  Country: None (occurrence: None)
  Receive Date: 20050609
  Receipt Date: 20050609
  Transmission Date: 20051028
  Serious: Yes (Hospitalization)
  Sender: FDA-Public Use
  Company Number: None

PATIENT
  Age: 92 Year
  Sex: Female
  Weight: 54.3 kg

DRUGS (1)
  1. FENTANYL [Suspect]
     Indication: PAIN
     Dosage: 75MCG/HR     Q3D    TOPICAL
     Route: 061
     Dates: start: 20050419, end: 20050421

REACTIONS (7)
  - DEPRESSED LEVEL OF CONSCIOUSNESS [None]
  - DRUG ADMINISTRATION ERROR [None]
  - EATING DISORDER [None]
  - MEDICATION ERROR [None]
  - ORAL SOFT TISSUE DISORDER [None]
  - PYREXIA [None]
  - SKIN ULCER [None]
